FAERS Safety Report 5582435-7 (Version None)
Quarter: 2007Q4

REPORT INFORMATION
  Report Type: 
  Country: None (occurrence: None)
  Receive Date: 20071130
  Receipt Date: 20070122
  Transmission Date: 20080405
  Serious: Yes (Other)
  Sender: FDA-Public Use
  Company Number: WAES 0701USA03897

PATIENT
  Age: 73 Year
  Sex: Female

DRUGS (8)
  1. FOSAMAX [Suspect]
     Indication: OSTEOPOROSIS
     Dosage: PO
     Route: 048
     Dates: start: 20020101, end: 20060101
  2. AMBIEN [Concomitant]
  3. MIACALCIN [Concomitant]
  4. SPIRIVA [Concomitant]
  5. WELLBUTRIN [Concomitant]
  6. CALCIUM + VITAMIN [Concomitant]
  7. OXYGEN [Concomitant]
  8. VITAMIN D [Concomitant]

REACTIONS (1)
  - OSTEONECROSIS [None]
